FAERS Safety Report 9645429 (Version 2)
Quarter: 2013Q4

REPORT INFORMATION
  Report Type: Report from Study
  Country: GB (occurrence: GB)
  Receive Date: 20131025
  Receipt Date: 20131104
  Transmission Date: 20140711
  Serious: Yes (Hospitalization)
  Sender: FDA-Public Use
  Company Number: GB-PFIZER INC-2013298021

PATIENT
  Age: 39 Year
  Sex: Female
  Weight: 54 kg

DRUGS (2)
  1. CRIZOTINIB [Suspect]
     Indication: CLEAR CELL SARCOMA OF SOFT TISSUE
     Dosage: 250 MG, 2X/DAY
     Route: 048
     Dates: start: 20130902, end: 20131011
  2. PARACETAMOL [Concomitant]
     Indication: PAIN
     Dosage: 1 G, 4X/DAY
     Route: 048
     Dates: start: 20131014

REACTIONS (1)
  - Pleural effusion [Recovered/Resolved]
